FAERS Safety Report 4592345-X (Version None)
Quarter: 2005Q1

REPORT INFORMATION
  Report Type: 
  Country: None (occurrence: None)
  Receive Date: 20050228
  Receipt Date: 20041213
  Transmission Date: 20050727
  Serious: Yes (Hospitalization)
  Sender: FDA-Public Use
  Company Number: US-BRISTOL-MYERS SQUIBB COMPANY-12794988

PATIENT
  Sex: Female

DRUGS (2)
  1. ABILIFY [Suspect]
     Indication: PERSECUTORY DELUSION
     Route: 048
  2. COGENTIN [Concomitant]

REACTIONS (1)
  - EXTRAPYRAMIDAL DISORDER [None]
